FAERS Safety Report 5343433-1 (Version None)
Quarter: 2007Q2

REPORT INFORMATION
  Report Type: 
  Country: None (occurrence: None)
  Receive Date: 20070531
  Receipt Date: 20070518
  Transmission Date: 20071010
  Serious: Yes (Other)
  Sender: FDA-Public Use
  Company Number: 230063K07GBR

PATIENT
  Age: 10 Year
  Sex: Female

DRUGS (2)
  1. REBIF [Suspect]
     Dosage: 22, 3 IN 1 WEEKS, SUBCUTANEOUS
     Route: 058
     Dates: start: 20070322
  2. CARBAMAZEPINE [Concomitant]

REACTIONS (2)
  - CONVULSION [None]
  - MULTIPLE SCLEROSIS [None]
